FAERS Safety Report 7473433-7 (Version None)
Quarter: 2011Q2

REPORT INFORMATION
  Report Type: 
  Country: None (occurrence: None)
  Receive Date: 20110511
  Receipt Date: 20110510
  Transmission Date: 20111010
  Serious: Yes (Death, Other)
  Sender: FDA-Public Use
  Company Number: US-PFIZER INC-2011096237

PATIENT
  Age: 26 Year
  Sex: Male

DRUGS (9)
  1. HYDROXYZINE HCL [Suspect]
  2. XANAX [Suspect]
  3. COCAINE [Suspect]
  4. CANNABIS [Suspect]
  5. MORPHINE [Suspect]
  6. QUETIAPINE [Suspect]
  7. IBUPROFEN [Suspect]
  8. OXYCONTIN [Suspect]
  9. ESCITALOPRAM [Suspect]

REACTIONS (2)
  - ACCIDENTAL OVERDOSE [None]
  - TOXICITY TO VARIOUS AGENTS [None]
